FAERS Safety Report 18362534 (Version 2)
Quarter: 2023Q1

REPORT INFORMATION
  Report Type: Spontaneous
  Country: FR (occurrence: FR)
  Receive Date: 20201009
  Receipt Date: 20230124
  Transmission Date: 20230417
  Serious: Yes (Other)
  Sender: FDA-Public Use
  Company Number: None

PATIENT
  Age: 74 Year
  Sex: Female

DRUGS (1)
  1. IRINOTECAN [Suspect]
     Active Substance: IRINOTECAN
     Indication: Colon cancer
     Route: 042
     Dates: start: 20200602, end: 20200602

REACTIONS (4)
  - Hypotension [Recovered/Resolved]
  - Rash [Recovered/Resolved]
  - Oxygen saturation decreased [Recovered/Resolved]
  - Malaise [Recovered/Resolved]

NARRATIVE: CASE EVENT DATE: 20200602
